FAERS Safety Report 7807634-2 (Version None)
Quarter: 2011Q4

REPORT INFORMATION
  Report Type: 
  Country: None (occurrence: None)
  Receive Date: 20111011
  Receipt Date: 20111005
  Transmission Date: 20120403
  Serious: Yes (Other)
  Sender: FDA-Public Use
  Company Number: JP-PFIZER INC-2011238137

PATIENT
  Age: 62 Year
  Sex: Female

DRUGS (2)
  1. CYCLOPHOSPHAMIDE [Suspect]
     Indication: BREAST CANCER
     Dosage: 600 MG/M2, UNK
  2. EPIRUBICIN HYDROCHLORIDE [Suspect]
     Indication: BREAST CANCER
     Dosage: 100 MG/M2, UNK

REACTIONS (2)
  - FEBRILE NEUTROPENIA [None]
  - SHUNT OCCLUSION [None]
